FAERS Safety Report 6766957-9 (Version None)
Quarter: 2010Q2

REPORT INFORMATION
  Report Type: 
  Country: None (occurrence: None)
  Receive Date: 20100611
  Receipt Date: 20100608
  Transmission Date: 20101027
  Serious: Yes (Hospitalization)
  Sender: FDA-Public Use
  Company Number: US-GILEAD-2010-0029679

PATIENT
  Sex: Female

DRUGS (13)
  1. LETAIRIS [Suspect]
     Indication: PULMONARY ARTERIAL HYPERTENSION
     Route: 048
     Dates: start: 20100324
  2. FLOLAN [Concomitant]
  3. REVATIO [Concomitant]
  4. ALDACTONE [Concomitant]
  5. LASIX [Concomitant]
  6. ANTARA (MICRONIZED) [Concomitant]
  7. PRILOSEC OTC [Concomitant]
  8. ALLEGRA [Concomitant]
  9. COLCHICINE [Concomitant]
  10. KLOR-CON [Concomitant]
  11. MS CONTIN [Concomitant]
  12. MAGNESIUM OXIDE [Concomitant]
  13. VITAMIN D [Concomitant]

REACTIONS (4)
  - BACK PAIN [None]
  - CHEST PAIN [None]
  - DYSPNOEA [None]
  - OXYGEN SUPPLEMENTATION [None]
